FAERS Safety Report 11857765 (Version 1)
Quarter: 2015Q4

REPORT INFORMATION
  Report Type: Spontaneous
  Country: US (occurrence: None)
  Receive Date: 20151221
  Receipt Date: 20151221
  Transmission Date: 20160305
  Serious: Yes (Disabling)
  Sender: FDA-Public Use
  Company Number: None

PATIENT
  Age: 27 Year
  Sex: Male
  Weight: 60 kg

DRUGS (2)
  1. AMARYL [Concomitant]
     Active Substance: GLIMEPIRIDE
  2. AMARYL [Suspect]
     Active Substance: GLIMEPIRIDE
     Indication: TYPE 2 DIABETES MELLITUS
     Dosage: 1 PILL
     Route: 048

REACTIONS (1)
  - Diplopia [None]

NARRATIVE: CASE EVENT DATE: 20151201
